FAERS Safety Report 5713732-X (Version None)
Quarter: 2008Q2

REPORT INFORMATION
  Report Type: 
  Country: None (occurrence: None)
  Receive Date: 20080418
  Receipt Date: 20080407
  Transmission Date: 20081010
  Serious: Yes (Hospitalization)
  Sender: FDA-Public Use
  Company Number: GXKR2008GB03363

PATIENT
  Age: 72 Year
  Sex: Male

DRUGS (4)
  1. PHENYTOIN [Suspect]
     Indication: EPILEPSY
     Dosage: 200 MG, BID,
  2. OMEPRAZOLE [Suspect]
  3. PERINDOPRIL ERBUMINE [Concomitant]
  4. INDAPAMIDE [Concomitant]

REACTIONS (6)
  - ANTICONVULSANT DRUG LEVEL ABOVE THERAPEUTIC [None]
  - CEREBELLAR SYNDROME [None]
  - CEREBROVASCULAR ACCIDENT [None]
  - FALL [None]
  - INHIBITORY DRUG INTERACTION [None]
  - THERAPEUTIC AGENT TOXICITY [None]
